FAERS Safety Report 8382659-X (Version None)
Quarter: 2012Q2

REPORT INFORMATION
  Report Type: 
  Country: None (occurrence: None)
  Receive Date: 20120524
  Receipt Date: 20120516
  Transmission Date: 20120825
  Serious: Yes (Other)
  Sender: FDA-Public Use
  Company Number: JP-SANOFI-AVENTIS-2012SA029232

PATIENT
  Age: 59 Year
  Sex: Female
  Weight: 46 kg

DRUGS (8)
  1. FLUTICASONE FUROATE [Concomitant]
     Dosage: 27.6 MCG 56 METERED NASAL SPRAY
  2. EBRANTIL [Concomitant]
     Dosage: IN MORNING AND EVENING
  3. BESACOLIN [Concomitant]
     Dosage: IN MORNING, NOON AND EVENING. DOSE:0.9 UNIT(S)
  4. ALL OTHER THERAPEUTIC PRODUCTS [Concomitant]
     Dosage: IN MORNING AND NOON
  5. ALLEGRA [Suspect]
     Route: 048
     Dates: start: 20120412, end: 20120413
  6. FLUTICASONE PROPIONATE/SALMETEROL [Concomitant]
  7. HERBAL EXTRACTS [Concomitant]
     Dosage: IN MORNING, NOON AND EVENING
  8. UBRETID [Concomitant]
     Dosage: IN MORNING

REACTIONS (2)
  - URINARY RETENTION [None]
  - DYSURIA [None]
